FAERS Safety Report 11631119 (Version 2)
Quarter: 2015Q4

REPORT INFORMATION
  Report Type: Spontaneous
  Country: US (occurrence: None)
  Receive Date: 20151014
  Receipt Date: 20151105
  Transmission Date: 20160304
  Serious: Yes (Other)
  Sender: FDA-Public Use
  Company Number: US-MDT-ADR-2015-01958

PATIENT
  Age: 61 Year
  Sex: Female

DRUGS (1)
  1. BACLOFEN INTRATHECAL 2000 MCG/ML [Suspect]
     Active Substance: BACLOFEN
     Indication: MUSCLE SPASTICITY
     Dosage: 800 MCG/DAY

REACTIONS (2)
  - Post lumbar puncture syndrome [None]
  - Cerebrospinal fluid leakage [None]
